FAERS Safety Report 9707689 (Version 1)
Quarter: 2013Q4

REPORT INFORMATION
  Report Type: Spontaneous
  Country: US (occurrence: US)
  Receive Date: 20131125
  Receipt Date: 20131125
  Transmission Date: 20140711
  Serious: Yes (Hospitalization)
  Sender: FDA-Public Use
  Company Number: PHHY2013US134319

PATIENT
  Age: 34 Year
  Sex: Female
  Weight: 78 kg

DRUGS (11)
  1. METOPROLOL [Suspect]
     Indication: HYPERTENSION
     Dosage: 100 MG, BID
     Route: 048
     Dates: start: 20130205
  2. NEBIVOLOL [Suspect]
     Dosage: UNK UKN, UNK
  3. VITAMIN D3 [Concomitant]
     Dosage: UNK UKN, UNK
     Dates: start: 20130117
  4. PROTONIX [Concomitant]
     Dosage: UNK UKN, UNK
     Dates: start: 20130105
  5. MAGNESIUM OXIDE [Concomitant]
     Dosage: UNK UKN, UNK
     Dates: start: 20130105
  6. GLIPIZIDE [Concomitant]
     Dosage: UNK UKN, UNK
     Dates: start: 20130128
  7. CLONIDINE [Concomitant]
     Dosage: UNK UKN, UNK
     Dates: start: 20130208
  8. CELLCEPT [Concomitant]
     Dosage: UNK UKN, UNK
     Dates: start: 20130617
  9. PREDNISONE [Concomitant]
     Dosage: UNK UKN, UNK
     Dates: start: 20130402
  10. NIFEDIPINE [Concomitant]
     Dosage: UNK UKN, UNK
     Dates: start: 20130531
  11. PROGRAF [Concomitant]
     Dosage: UNK UKN, UNK
     Dates: start: 20130920, end: 20130922

REACTIONS (1)
  - Glomerulonephritis membranoproliferative [Not Recovered/Not Resolved]
